FAERS Safety Report 4371109-6 (Version None)
Quarter: 2004Q2

REPORT INFORMATION
  Report Type: 
  Country: None (occurrence: None)
  Receive Date: 20040604
  Receipt Date: 20040603
  Transmission Date: 20050107
  Serious: Yes (Life-Threatening, Hospitalization)
  Sender: FDA-Public Use
  Company Number: DE-BRISTOL-MYERS SQUIBB COMPANY-12604674

PATIENT
  Age: 64 Year
  Sex: Male

DRUGS (13)
  1. CARBOPLATIN [Suspect]
     Indication: PLEURAL MESOTHELIOMA
     Dosage: INITIAL DOSE: 13-MAR-2004 AUC 5
     Route: 042
     Dates: start: 20040826, end: 20040826
  2. PEMETREXED DISODIUM [Suspect]
     Indication: PLEURAL MESOTHELIOMA
     Dosage: INITIAL DOSE: 13-MAR-2004
     Route: 042
     Dates: start: 20040501, end: 20040501
  3. L-THYROXINE [Concomitant]
     Indication: HYPOTHYROIDISM
     Dosage: DURATION: A FEW YEARS
     Route: 048
  4. PANTOZOL [Concomitant]
     Indication: PROPHYLAXIS
     Dosage: DURATION: A FEW YEARS
  5. DECORTIN-H [Concomitant]
     Indication: RESPIRATORY FAILURE
     Dosage: DURATION: A FEW YEARS
  6. DIBLOCIN [Concomitant]
     Indication: BENIGN PROSTATIC HYPERPLASIA
     Dosage: DURATION: A FEW MONTHS
  7. SPASMO-URGENIN [Concomitant]
     Indication: BENIGN PROSTATIC HYPERPLASIA
     Dosage: DURATION: A FEW YEARS
     Route: 048
  8. NEDOLON P [Concomitant]
     Indication: CHEST PAIN
     Dosage: DURATION:  A FEW MONTHS
     Route: 048
  9. ZINCFRIN [Concomitant]
     Indication: CONJUNCTIVITIS
     Dosage: DURATION: A FEW MONTHS
  10. FOLIC ACID [Concomitant]
     Indication: PROPHYLAXIS
     Route: 048
  11. VITAMIN B-12 [Concomitant]
     Indication: PROPHYLAXIS
  12. VERGENTAN [Concomitant]
     Indication: PROPHYLAXIS
     Route: 048
  13. VIDISIC [Concomitant]
     Indication: CONJUNCTIVITIS

REACTIONS (1)
  - ILEUS PARALYTIC [None]
